FAERS Safety Report 16961899 (Version 1)
Quarter: 2019Q4

REPORT INFORMATION
  Report Type: Spontaneous
  Country: US (occurrence: US)
  Receive Date: 20191024
  Receipt Date: 20191024
  Transmission Date: 20200122
  Serious: Yes (Hospitalization)
  Sender: FDA-Public Use
  Company Number: None

PATIENT
  Sex: Male

DRUGS (9)
  1. AMLODIPINE [Concomitant]
     Active Substance: AMLODIPINE BESYLATE
  2. ATENOLOL. [Concomitant]
     Active Substance: ATENOLOL
  3. MELIOXICAM [Concomitant]
  4. TOPRIMATE [Concomitant]
     Active Substance: TOPIRAMATE
  5. LISINOPRIL. [Concomitant]
     Active Substance: LISINOPRIL
  6. FORTEO [Suspect]
     Active Substance: TERIPARATIDE
     Indication: OSTEOPOROSIS
     Route: 058
     Dates: start: 20190611
  7. CALCITONIN [Concomitant]
     Active Substance: CALCITONIN
  8. FOLIC ACID. [Concomitant]
     Active Substance: FOLIC ACID
  9. VITAMIN B1 [Concomitant]
     Active Substance: THIAMINE HYDROCHLORIDE

REACTIONS (2)
  - Therapy cessation [None]
  - Hospitalisation [None]
